FAERS Safety Report 5141645-3 (Version None)
Quarter: 2006Q4

REPORT INFORMATION
  Report Type: 
  Country: None (occurrence: None)
  Receive Date: 20061101
  Receipt Date: 20061027
  Transmission Date: 20070319
  Serious: Yes (Life-Threatening, Hospitalization, Disabling, Other)
  Sender: FDA-Public Use
  Company Number: GB-GLAXOSMITHKLINE-B0444477A

PATIENT
  Age: 80 Year
  Sex: Male
  Weight: 55 kg

DRUGS (8)
  1. ERYTHROMYCIN [Suspect]
     Indication: DRUG USE FOR UNKNOWN INDICATION
     Route: 065
  2. SIMVASTATIN [Suspect]
     Indication: DRUG USE FOR UNKNOWN INDICATION
     Dosage: 20MG PER DAY
     Route: 048
     Dates: start: 20050401, end: 20051121
  3. BUMETANIDE [Concomitant]
     Dosage: 2MG PER DAY
     Route: 048
  4. CARDICOR [Concomitant]
     Dosage: 1.25MG PER DAY
     Route: 048
  5. DIGOXIN [Concomitant]
     Dosage: 62.5UG PER DAY
     Route: 065
  6. LANSOPRAZOLE [Concomitant]
     Dosage: 30MG PER DAY
     Route: 065
  7. TRAMADOL HCL [Concomitant]
     Route: 048
  8. WARFARIN SODIUM [Concomitant]
     Dosage: 2MG PER DAY
     Route: 065

REACTIONS (2)
  - DRUG INTERACTION [None]
  - RHABDOMYOLYSIS [None]
